FAERS Safety Report 7016320-0 (Version None)
Quarter: 2010Q3

REPORT INFORMATION
  Report Type: 
  Country: None (occurrence: None)
  Receive Date: 20100927
  Receipt Date: 20100915
  Transmission Date: 20110219
  Serious: Yes (Hospitalization)
  Sender: FDA-Public Use
  Company Number: JP-PFIZER INC-2010105766

PATIENT
  Age: 71 Year
  Sex: Male

DRUGS (16)
  1. NOVASTAN [Suspect]
     Indication: THROMBOTIC CEREBRAL INFARCTION
     Dosage: UNK
     Route: 041
     Dates: start: 20100621, end: 20100628
  2. NOVASTAN [Suspect]
     Dosage: 30 MG, UNK
     Route: 041
     Dates: start: 20100621, end: 20100621
  3. NOVASTAN [Suspect]
     Dosage: 60 MG, UNK
     Route: 041
     Dates: start: 20100622, end: 20100622
  4. NOVASTAN [Suspect]
     Dosage: 40 MG, UNK
     Route: 041
     Dates: start: 20100623, end: 20100623
  5. NOVASTAN [Suspect]
     Dosage: 20 MG, UNK
     Route: 041
     Dates: start: 20100624, end: 20100627
  6. NOVASTAN [Suspect]
     Dosage: 10 MG, UNK
     Route: 041
     Dates: start: 20100627, end: 20100628
  7. RADICUT [Suspect]
     Indication: THROMBOTIC CEREBRAL INFARCTION
     Dosage: 30 MG, 2X/DAY
     Route: 041
     Dates: start: 20100621, end: 20100703
  8. PLETAL [Suspect]
     Indication: THROMBOTIC CEREBRAL INFARCTION
     Dosage: UNK
     Route: 048
     Dates: start: 20100624
  9. FLUVASTATIN [Suspect]
     Indication: HYPERLIPIDAEMIA
     Dosage: 20 MG, UNK
     Route: 048
     Dates: start: 20100622, end: 20100701
  10. GASTER [Suspect]
     Route: 065
  11. GASTER [Suspect]
     Dosage: 40 MG, UNK
     Route: 048
     Dates: start: 20100622, end: 20100702
  12. KETAS [Suspect]
     Route: 065
  13. KETAS [Suspect]
     Dosage: 30 MG, UNK
     Route: 048
     Dates: start: 20100626, end: 20100701
  14. GLYCEOL [Concomitant]
     Indication: THROMBOTIC CEREBRAL INFARCTION
     Dosage: 600 ML, UNK
     Route: 041
     Dates: start: 20100621, end: 20100625
  15. ACETYLSALICYLIC ACID [Concomitant]
     Indication: THROMBOTIC CEREBRAL INFARCTION
     Dosage: 100 MG, UNK
     Route: 048
     Dates: start: 20100701
  16. ACETYLSALICYLIC ACID [Concomitant]
     Dosage: 100 MG, UNK
     Route: 048
     Dates: start: 20100823

REACTIONS (1)
  - HEPATIC FUNCTION ABNORMAL [None]
